FAERS Safety Report 6111265-2 (Version None)
Quarter: 2009Q1

REPORT INFORMATION
  Report Type: 
  Country: None (occurrence: None)
  Receive Date: 20090309
  Receipt Date: 20090219
  Transmission Date: 20090719
  Serious: Yes (Other)
  Sender: FDA-Public Use
  Company Number: 8040955

PATIENT
  Age: 22 Year
  Sex: Male
  Weight: 71 kg

DRUGS (1)
  1. LEVOCETIRIZINE DIHYDROCHLORIDE [Suspect]
     Indication: URTICARIA CHRONIC
     Dosage: 5 MG 1/D PO
     Route: 048
     Dates: start: 20030101, end: 20080101

REACTIONS (1)
  - MUSCLE RUPTURE [None]
